FAERS Safety Report 9838960 (Version 2)
Quarter: 2014Q1

REPORT INFORMATION
  Report Type: Spontaneous
  Country: MT (occurrence: MT)
  Receive Date: 20140123
  Receipt Date: 20140123
  Transmission Date: 20141002
  Serious: Yes (Other)
  Sender: FDA-Public Use
  Company Number: MT-ACTAVIS-2013-23106

PATIENT
  Age: 41 Year
  Sex: Female

DRUGS (1)
  1. SIPROX [Suspect]
     Indication: VAGINAL ABSCESS
     Dosage: 2 DF, DAILY
     Route: 048
     Dates: start: 20130807, end: 20130811

REACTIONS (4)
  - Angioedema [Not Recovered/Not Resolved]
  - Face oedema [Not Recovered/Not Resolved]
  - Localised oedema [Not Recovered/Not Resolved]
  - Photosensitivity reaction [Unknown]
